FAERS Safety Report 16270690 (Version 4)
Quarter: 2019Q2

REPORT INFORMATION
  Report Type: Spontaneous
  Country: IT (occurrence: IT)
  Receive Date: 20190503
  Receipt Date: 20190614
  Transmission Date: 20190711
  Serious: Yes (Hospitalization, Other)
  Sender: FDA-Public Use
  Company Number: IT-SA-2019SA119536

PATIENT
  Age: 68 Year
  Sex: Male

DRUGS (9)
  1. ALIROCUMAB [Suspect]
     Active Substance: ALIROCUMAB
     Dosage: UNK
  2. ATORVASTATIN [Concomitant]
     Active Substance: ATORVASTATIN
  3. PANTOPRAZOL [PANTOPRAZOLE] [Concomitant]
     Active Substance: PANTOPRAZOLE
  4. OLMESARTAN [Concomitant]
     Active Substance: OLMESARTAN
  5. CLOPIDOGREL [Concomitant]
     Active Substance: CLOPIDOGREL BISULFATE
  6. EZETIMIBE. [Concomitant]
     Active Substance: EZETIMIBE
  7. AMLODIPINE [Concomitant]
     Active Substance: AMLODIPINE BESYLATE
  8. RANOLAZINE. [Concomitant]
     Active Substance: RANOLAZINE
  9. ATENOLOL. [Concomitant]
     Active Substance: ATENOLOL

REACTIONS (4)
  - Angina unstable [Recovered/Resolved]
  - Coronary artery disease [Recovered/Resolved]
  - Chest pain [Recovered/Resolved]
  - Dyspnoea [Recovered/Resolved]

NARRATIVE: CASE EVENT DATE: 20190415
